FAERS Safety Report 13466296 (Version 1)
Quarter: 2017Q2

REPORT INFORMATION
  Report Type: Spontaneous
  Country: US (occurrence: US)
  Receive Date: 20170421
  Receipt Date: 20170421
  Transmission Date: 20170830
  Serious: Yes (Other)
  Sender: FDA-Public Use
  Company Number: None

PATIENT
  Age: 74 Year
  Sex: Female
  Weight: 62.6 kg

DRUGS (2)
  1. ATORVASTATIN 10MG TABLET [Suspect]
     Active Substance: ATORVASTATIN
     Indication: BLOOD CHOLESTEROL INCREASED
     Dosage: QUANTITY:1 PILL EVENING MOUTH?
     Route: 048
     Dates: start: 20170410, end: 20170413
  2. LISINOPRIL. [Concomitant]
     Active Substance: LISINOPRIL

REACTIONS (5)
  - Pyrexia [None]
  - Abnormal faeces [None]
  - Disorientation [None]
  - Pain [None]
  - Somnolence [None]
